FAERS Safety Report 6221672-5 (Version None)
Quarter: 2009Q2

REPORT INFORMATION
  Report Type: 
  Country: None (occurrence: None)
  Receive Date: 20090608
  Receipt Date: 20090527
  Transmission Date: 20091009
  Serious: Yes (Hospitalization)
  Sender: FDA-Public Use
  Company Number: B0576913A

PATIENT
  Age: 59 Year
  Sex: Female

DRUGS (7)
  1. AZATHIOPRINE [Suspect]
     Indication: RHEUMATOID ARTHRITIS
  2. CHLORAMBUCIL (FORMULATION UNKNOWN) (GENERIC) (CHLORAMBUCIL) [Suspect]
  3. GLUCOCORTICOID (FORMULATION UNKNOWN) (GLUCOCORTICOID) [Suspect]
  4. GOLD SODIUM THIOMALATE [Concomitant]
  5. CHLOROQUINE [Concomitant]
  6. PENICILLAMINE [Concomitant]
  7. PODOPHYLLOTOXIN [Concomitant]

REACTIONS (12)
  - ASTHENIA [None]
  - BLOOD BRAIN BARRIER DEFECT [None]
  - CEREBROVASCULAR DISORDER [None]
  - DISORIENTATION [None]
  - GLOMERULAR FILTRATION RATE DECREASED [None]
  - JC VIRUS TEST POSITIVE [None]
  - MOBILITY DECREASED [None]
  - PROGRESSIVE MULTIFOCAL LEUKOENCEPHALOPATHY [None]
  - SENSORY LOSS [None]
  - SPEECH DISORDER [None]
  - VERTIGO [None]
  - WHEELCHAIR USER [None]
